FAERS Safety Report 22518915 (Version 2)
Quarter: 2023Q2

REPORT INFORMATION
  Report Type: Spontaneous
  Country: CN (occurrence: CN)
  Receive Date: 20230605
  Receipt Date: 20230613
  Transmission Date: 20230722
  Serious: Yes (Life-Threatening, Hospitalization, Other)
  Sender: FDA-Public Use
  Company Number: None

PATIENT
  Age: 25 Year
  Sex: Female

DRUGS (4)
  1. MYCOPHENOLATE MOFETIL [Suspect]
     Active Substance: MYCOPHENOLATE MOFETIL
     Indication: Immunosuppressant drug therapy
     Dosage: UNK;  INDUCTION IMMUNOSUPPRESSIVE THERAPY
     Route: 065
  2. MYCOPHENOLATE MOFETIL [Suspect]
     Active Substance: MYCOPHENOLATE MOFETIL
     Dosage: UNK;  MAINTENANCE IMMUNOSUPPRESSION
     Route: 065
  3. TACROLIMUS [Suspect]
     Active Substance: TACROLIMUS
     Indication: Immunosuppressant drug therapy
     Dosage: UNK
     Route: 065
  4. BASILIXIMAB [Suspect]
     Active Substance: BASILIXIMAB
     Indication: Immunosuppressant drug therapy
     Dosage: UNK
     Route: 065

REACTIONS (9)
  - Pulmonary oedema [Recovered/Resolved]
  - Complications of transplanted kidney [Recovered/Resolved]
  - Escherichia infection [Recovered/Resolved]
  - Proteus infection [Recovered/Resolved]
  - Renal abscess [Recovered/Resolved]
  - Respiratory distress [Recovered/Resolved]
  - Septic shock [Recovered/Resolved]
  - Urinary tract infection [Recovered/Resolved]
  - Bacteraemia [Recovered/Resolved]
